FAERS Safety Report 7832078-7 (Version None)
Quarter: 2011Q4

REPORT INFORMATION
  Report Type: 
  Country: None (occurrence: None)
  Receive Date: 20111022
  Receipt Date: 20111013
  Transmission Date: 20120403
  Serious: Yes (Death, Other)
  Sender: FDA-Public Use
  Company Number: US-BAYER-201028057NA

PATIENT
  Age: 61 Year
  Sex: Male
  Weight: 124 kg

DRUGS (29)
  1. COREG [Concomitant]
  2. ATENOLOL [Concomitant]
  3. METRONIDAZOLE [Concomitant]
  4. WARFARIN SODIUM [Concomitant]
  5. LISINOPRIL [Concomitant]
  6. NEPHROCAPS [VIT C,VIT H,B12,B9,B3,PANTOTHEN AC,B6,B2,B1 HCL] [Concomitant]
  7. NEPHROCAPS [Concomitant]
  8. VANCOMYCIN HCL [Concomitant]
  9. COREG [Concomitant]
  10. HYDROCODONE BITARTRATE AND ACETAMINOPHEN [Concomitant]
  11. AMOXICILLIN [Concomitant]
  12. MAGNEVIST [Suspect]
     Indication: NUCLEAR MAGNETIC RESONANCE IMAGING
     Dosage: 15 ML (DAILY DOSE), ONCE,
     Dates: start: 20000811, end: 20000811
  13. EPOGEN [Concomitant]
  14. PRINIVIL [Concomitant]
  15. VITAMIN B6 [Concomitant]
  16. PHOSLO [Concomitant]
  17. SOLIVITO N [VIT C,VIT H,B12,B9,B3,PANTOTHENIC AC,B6,B2,B1 HCL] [Concomitant]
  18. ASPIRIN [Concomitant]
  19. TYLENOL WITH CODEIN #3 [Concomitant]
  20. MAGNEVIST [Suspect]
     Dosage: 15 ML (DAILY DOSE), ONCE,
     Route: 042
     Dates: start: 20010727, end: 20010727
  21. PHOSLO [Concomitant]
  22. DILTIAZEM HCL [Concomitant]
  23. PLENDIL [Concomitant]
  24. DARVOCET [Concomitant]
  25. IRON [IRON] [Concomitant]
  26. GADOLINIUM IN UNSPECIFIED DRUG [Suspect]
     Indication: NUCLEAR MAGNETIC RESONANCE IMAGING
     Dates: start: 20050101, end: 20050101
  27. PLENDIL [Concomitant]
  28. RENAGEL [Concomitant]
  29. SODIUM BICARBONATE [Concomitant]

REACTIONS (15)
  - PRURITUS GENERALISED [None]
  - ASTHENIA [None]
  - SKIN TIGHTNESS [None]
  - OEDEMA PERIPHERAL [None]
  - HYPOAESTHESIA [None]
  - SKIN DISCOLOURATION [None]
  - NEPHROGENIC SYSTEMIC FIBROSIS [None]
  - JOINT RANGE OF MOTION DECREASED [None]
  - EXTREMITY CONTRACTURE [None]
  - PAIN [None]
  - MUSCULOSKELETAL STIFFNESS [None]
  - PARAESTHESIA [None]
  - WHEELCHAIR USER [None]
  - MOBILITY DECREASED [None]
  - SKIN INDURATION [None]
